FAERS Safety Report 5011283-1 (Version None)
Quarter: 2006Q2

REPORT INFORMATION
  Report Type: 
  Country: None (occurrence: None)
  Receive Date: 20060523
  Receipt Date: 20060523
  Transmission Date: 20061013
  Serious: Yes (Hospitalization)
  Sender: FDA-Public Use
  Company Number: None

PATIENT
  Sex: Male
  Weight: 106 kg

DRUGS (13)
  1. IRINOTECAN [Suspect]
     Indication: GLIOBLASTOMA MULTIFORME
     Dosage: 125 MG/M2 DAY 1, 8, 22, 29 IV
     Route: 042
     Dates: start: 20060420
  2. IRINOTECAN [Suspect]
     Indication: GLIOBLASTOMA MULTIFORME
     Dosage: 125 MG/M2 DAY 1, 8, 22, 29 IV
     Route: 042
     Dates: start: 20060427
  3. IRINOTECAN [Suspect]
     Indication: GLIOBLASTOMA MULTIFORME
     Dosage: 125 MG/M2 DAY 1, 8, 22, 29 IV
     Route: 042
     Dates: start: 20060511
  4. TEMODAR [Suspect]
     Indication: GLIOBLASTOMA MULTIFORME
     Dosage: 200 MG/M2 DAYS 1-5 PO
     Route: 048
     Dates: start: 20060420, end: 20060424
  5. WELLBUTRIN [Concomitant]
  6. DECADRON SRC [Concomitant]
  7. PROVIGIL [Concomitant]
  8. XANAX [Concomitant]
  9. PROTONIX [Concomitant]
  10. LISINOPRIL [Concomitant]
  11. ZANTAC [Concomitant]
  12. OXYCODONE [Concomitant]
  13. FLEXERIL [Concomitant]

REACTIONS (4)
  - CONVULSION [None]
  - FATIGUE [None]
  - LABORATORY TEST ABNORMAL [None]
  - SOMNOLENCE [None]
